FAERS Safety Report 18638483 (Version 1)
Quarter: 2020Q4

REPORT INFORMATION
  Report Type: Other
  Country: GB (occurrence: GB)
  Receive Date: 20201218
  Receipt Date: 20201218
  Transmission Date: 20210114
  Serious: Yes (Other)
  Sender: FDA-Public Use
  Company Number: GB-ASCEND THERAPEUTICS US, LLC-2103202

PATIENT
  Sex: Female

DRUGS (4)
  1. ESTROGEL [Suspect]
     Active Substance: ESTRADIOL
     Indication: MENOPAUSE
     Route: 065
  2. ESTROGEL [Suspect]
     Active Substance: ESTRADIOL
  3. OESTROGEL (ESTRADIOL) (GEL), UNKNOWN, UNKNOWN [Suspect]
     Active Substance: ESTRADIOL
     Route: 065
  4. OESTROGEL (ESTRADIOL) (GEL), UNKNOWN, UNKNOWN [Suspect]
     Active Substance: ESTRADIOL
     Route: 065

REACTIONS (6)
  - Vulvovaginal dryness [Unknown]
  - Hot flush [Unknown]
  - Anxiety [Unknown]
  - Fatigue [Unknown]
  - Intentional product use issue [None]
  - Benign neoplasm of thyroid gland [Unknown]
